FAERS Safety Report 9109719 (Version 2)
Quarter: 2013Q1

REPORT INFORMATION
  Report Type: Spontaneous
  Country: US (occurrence: US)
  Receive Date: 20130222
  Receipt Date: 20130227
  Transmission Date: 20140127
  Serious: No
  Sender: FDA-Public Use
  Company Number: US-PFIZER INC-2013063634

PATIENT
  Age: 71 Year
  Sex: Male
  Weight: 95.24 kg

DRUGS (3)
  1. TIKOSYN [Suspect]
     Indication: ATRIAL FIBRILLATION
     Dosage: 250 MG, EVERY 12 HOURS
     Dates: start: 201209
  2. METOPROLOL XL [Concomitant]
     Indication: HEART RATE ABNORMAL
     Dosage: 25 MG, UNK
  3. XARELTO [Concomitant]
     Dosage: 20 MG, UNK

REACTIONS (1)
  - Therapeutic response unexpected [Unknown]
